FAERS Safety Report 9308684 (Version 1)
Quarter: 2013Q2

REPORT INFORMATION
  Report Type: Spontaneous
  Country: GB (occurrence: GB)
  Receive Date: 20130524
  Receipt Date: 20130524
  Transmission Date: 20140414
  Serious: Yes (Hospitalization)
  Sender: FDA-Public Use
  Company Number: PHHY2013GB050261

PATIENT
  Age: 66 Year
  Sex: Female

DRUGS (4)
  1. METFORMIN [Suspect]
     Indication: TYPE 2 DIABETES MELLITUS
     Dosage: 1 G, BID
  2. RAMIPRIL [Suspect]
     Indication: HYPERTENSION
     Dosage: 10 MG, QD
  3. BENDROFLUMETHIAZIDE [Concomitant]
     Indication: HYPERTENSION
     Dosage: 2.5 MG, QD
  4. SIMVASTATIN [Concomitant]
     Dosage: 40 MG, QHS

REACTIONS (21)
  - Cardiac arrest [Recovered/Resolved]
  - Pulseless electrical activity [Recovered/Resolved]
  - Renal failure acute [Recovered/Resolved]
  - Peritonitis [Recovered/Resolved]
  - Sepsis [Recovered/Resolved]
  - Haemodynamic instability [Recovered/Resolved]
  - Abdominal pain [Recovered/Resolved]
  - Anuria [Recovered/Resolved]
  - Oliguria [Recovered/Resolved]
  - Hypoglycaemia [Recovered/Resolved]
  - Hypotension [Recovered/Resolved]
  - Bradycardia [Recovered/Resolved]
  - Hyperkalaemia [Recovered/Resolved]
  - Shock [Recovered/Resolved]
  - Unresponsive to stimuli [Recovered/Resolved]
  - Hypothermia [Recovered/Resolved]
  - Abdominal abscess [Recovered/Resolved]
  - Toxicity to various agents [Recovered/Resolved]
  - Lactic acidosis [Recovered/Resolved]
  - Vomiting [Recovered/Resolved]
  - Diarrhoea [Not Recovered/Not Resolved]
